FAERS Safety Report 9787551 (Version 2)
Quarter: 2014Q2

REPORT INFORMATION
  Report Type: Spontaneous
  Country: GB (occurrence: GB)
  Receive Date: 20131230
  Receipt Date: 20140404
  Transmission Date: 20141212
  Serious: Yes (Hospitalization, Other)
  Sender: FDA-Public Use
  Company Number: GB-ACCORD-020939

PATIENT
  Age: 27 Year
  Sex: Male

DRUGS (3)
  1. SIMVASTATIN [Suspect]
     Indication: HYPERLIPIDAEMIA
     Route: 048
     Dates: start: 201212, end: 201312
  2. CLONAZEPAM [Concomitant]
     Indication: MYOCLONUS
     Route: 048
     Dates: start: 201303
  3. CLOZAPINE [Suspect]
     Indication: SCHIZOPHRENIA
     Dosage: STARTED AT UNK DOSE THEN ON UNK DATE, AT 700 MG/DAY AND DOSE WAS REDUCED IN JAN-2013 TO 350 MG/DAY.
     Route: 048
     Dates: start: 20090213

REACTIONS (4)
  - Hyperlipidaemia [Recovering/Resolving]
  - Lower limb fracture [Recovering/Resolving]
  - Myoclonus [Unknown]
  - Fall [Unknown]
